FAERS Safety Report 10461996 (Version 16)
Quarter: 2016Q3

REPORT INFORMATION
  Report Type: Report from Study
  Country: US (occurrence: US)
  Receive Date: 20140918
  Receipt Date: 20160801
  Transmission Date: 20161109
  Serious: Yes (Hospitalization, Other)
  Sender: FDA-Public Use
  Company Number: US-SA-2013SA104976

PATIENT
  Age: 58 Year
  Sex: Female

DRUGS (12)
  1. AUBAGIO [Suspect]
     Active Substance: TERIFLUNOMIDE
     Indication: MULTIPLE SCLEROSIS
     Route: 048
     Dates: start: 20131204
  2. ASMANEX [Concomitant]
     Active Substance: MOMETASONE FUROATE
  3. COLCRYS [Concomitant]
     Active Substance: COLCHICINE
  4. AUBAGIO [Suspect]
     Active Substance: TERIFLUNOMIDE
     Indication: MULTIPLE SCLEROSIS
     Route: 048
     Dates: start: 20131007, end: 20131009
  5. PROAIR HFA [Concomitant]
     Active Substance: ALBUTEROL SULFATE
  6. NASONEX [Concomitant]
     Active Substance: MOMETASONE FUROATE
  7. SYNTHROID [Concomitant]
     Active Substance: LEVOTHYROXINE SODIUM
  8. AUBAGIO [Suspect]
     Active Substance: TERIFLUNOMIDE
     Indication: MULTIPLE SCLEROSIS
     Route: 048
     Dates: start: 20150402
  9. XANAX [Concomitant]
     Active Substance: ALPRAZOLAM
  10. DULERA [Concomitant]
     Active Substance: FORMOTEROL FUMARATE DIHYDRATE\MOMETASONE FUROATE
  11. AUBAGIO [Suspect]
     Active Substance: TERIFLUNOMIDE
     Indication: MULTIPLE SCLEROSIS
     Route: 048
     Dates: start: 20150402
  12. AUBAGIO [Suspect]
     Active Substance: TERIFLUNOMIDE
     Indication: MULTIPLE SCLEROSIS
     Route: 048
     Dates: start: 2013, end: 2013

REACTIONS (76)
  - Hepatic cyst [Not Recovered/Not Resolved]
  - Tongue disorder [Not Recovered/Not Resolved]
  - Urticaria [Not Recovered/Not Resolved]
  - Malaise [Unknown]
  - Heart rate abnormal [Unknown]
  - Hypotension [Unknown]
  - Mass [Not Recovered/Not Resolved]
  - Tachycardia [Not Recovered/Not Resolved]
  - Headache [Recovered/Resolved]
  - Fall [Unknown]
  - Dysphagia [Unknown]
  - Oropharyngeal pain [Not Recovered/Not Resolved]
  - Peripheral coldness [Unknown]
  - Secretion discharge [Unknown]
  - Sinusitis [Unknown]
  - Anxiety [Not Recovered/Not Resolved]
  - Weight decreased [Unknown]
  - Pain [Not Recovered/Not Resolved]
  - Feeling abnormal [Unknown]
  - Abdominal pain upper [Unknown]
  - Rheumatoid arthritis [Unknown]
  - Dehydration [Not Recovered/Not Resolved]
  - Pericarditis [Recovered/Resolved]
  - Skin discolouration [Unknown]
  - Nasal congestion [Unknown]
  - Alopecia [Recovering/Resolving]
  - Jaw disorder [Unknown]
  - Drug dose omission [Unknown]
  - Hypertension [Recovering/Resolving]
  - Blood pressure increased [Recovering/Resolving]
  - Raynaud^s phenomenon [Unknown]
  - Joint swelling [Unknown]
  - Mood swings [Unknown]
  - Vision blurred [Unknown]
  - Foot fracture [Unknown]
  - Urinary tract infection [Unknown]
  - Electrocardiogram abnormal [Unknown]
  - Vitamin D decreased [Unknown]
  - Chest pain [Not Recovered/Not Resolved]
  - Abdominal pain [Not Recovered/Not Resolved]
  - Paraesthesia [Not Recovered/Not Resolved]
  - Influenza [Unknown]
  - Diarrhoea [Recovered/Resolved]
  - Myalgia [Not Recovered/Not Resolved]
  - Malaise [Recovering/Resolving]
  - Pain in extremity [Unknown]
  - Unevaluable event [Unknown]
  - Asthenia [Not Recovered/Not Resolved]
  - Eye disorder [Unknown]
  - Nausea [Unknown]
  - Dyspnoea [Unknown]
  - Muscle spasms [Not Recovered/Not Resolved]
  - Neck pain [Unknown]
  - Fatigue [Not Recovered/Not Resolved]
  - Nasal dryness [Not Recovered/Not Resolved]
  - Seasonal allergy [Unknown]
  - Palpitations [Unknown]
  - Viral infection [Recovered/Resolved]
  - Gastrooesophageal reflux disease [Unknown]
  - Chondritis [Unknown]
  - Pain [Not Recovered/Not Resolved]
  - Upper respiratory tract infection [Unknown]
  - Asthenia [Unknown]
  - Central nervous system lesion [Unknown]
  - Food allergy [Unknown]
  - Condition aggravated [Unknown]
  - Decreased appetite [Unknown]
  - Hepatic enzyme increased [Not Recovered/Not Resolved]
  - Epicondylitis [Unknown]
  - Carpal tunnel syndrome [Unknown]
  - Muscular weakness [Unknown]
  - Crying [Unknown]
  - Nervous system disorder [Unknown]
  - Limb discomfort [Unknown]
  - Spinal pain [Recovering/Resolving]
  - Asthenia [Not Recovered/Not Resolved]

NARRATIVE: CASE EVENT DATE: 2013
